FAERS Safety Report 15586780 (Version 1)
Quarter: 2018Q4

REPORT INFORMATION
  Report Type: Spontaneous
  Country: US (occurrence: US)
  Receive Date: 20181101
  Receipt Date: 20181101
  Transmission Date: 20190205
  Serious: Yes (Hospitalization)
  Sender: FDA-Public Use
  Company Number: None

PATIENT
  Age: 65 Year
  Sex: Male
  Weight: 69.5 kg

DRUGS (2)
  1. ETOPOSIDE (VP-16) [Suspect]
     Active Substance: ETOPOSIDE
     Dates: end: 20181008
  2. CISPLATIN. [Suspect]
     Active Substance: CISPLATIN
     Dates: end: 20181008

REACTIONS (7)
  - Cholangitis [None]
  - Cholecystitis [None]
  - Abdominal tenderness [None]
  - Pyrexia [None]
  - Transaminases increased [None]
  - Chills [None]
  - Leukocytosis [None]

NARRATIVE: CASE EVENT DATE: 20181027
